FAERS Safety Report 4906981-1 (Version None)
Quarter: 2006Q1

REPORT INFORMATION
  Report Type: 
  Country: None (occurrence: None)
  Receive Date: 20060207
  Receipt Date: 20060125
  Transmission Date: 20060701
  Serious: Yes (Hospitalization)
  Sender: FDA-Public Use
  Company Number: 217726

PATIENT
  Age: 58 Year
  Sex: Female

DRUGS (4)
  1. AVASTIN(BEVACIZUMAB) PWDR + SOLVENT,INFUSION SOLN, 100MG [Suspect]
     Indication: COLON CANCER
     Dosage: 330 MG, Q2W,
     Dates: start: 20050601
  2. LEUCOVORIN CALCIUM [Concomitant]
  3. 5-FLUORUORACIL (FLUOROURACIL) [Concomitant]
  4. OXALIPLATIN (OXALIPLATIN) [Concomitant]

REACTIONS (2)
  - ABDOMINAL PAIN LOWER [None]
  - GASTROINTESTINAL PERFORATION [None]
